FAERS Safety Report 17366080 (Version 1)
Quarter: 2020Q1

REPORT INFORMATION
  Report Type: Report from Study
  Country: FR (occurrence: FR)
  Receive Date: 20200204
  Receipt Date: 20200204
  Transmission Date: 20200409
  Serious: Yes (Death)
  Sender: FDA-Public Use
  Company Number: FR-PFIZER INC-2020040589

PATIENT
  Age: 54 Year
  Sex: Male

DRUGS (12)
  1. CYCLOPHOSPHAMIDE. [Suspect]
     Active Substance: CYCLOPHOSPHAMIDE
     Indication: BING-NEEL SYNDROME
     Dosage: 60 MG/KG, D-3, D-2
     Route: 037
  2. CYCLOPHOSPHAMIDE. [Suspect]
     Active Substance: CYCLOPHOSPHAMIDE
     Indication: PROPHYLAXIS AGAINST TRANSPLANT REJECTION
     Dosage: SYSTEMIC ROUTE
     Route: 065
  3. CYTARABINE. [Suspect]
     Active Substance: CYTARABINE
     Indication: BING-NEEL SYNDROME
     Dosage: UNK
     Route: 037
  4. THIOTEPA. [Suspect]
     Active Substance: THIOTEPA
     Indication: PROPHYLAXIS AGAINST TRANSPLANT REJECTION
     Dosage: 250 MG/M2, D-9, D-8, D-7
  5. DOXORUBICIN HCL [Suspect]
     Active Substance: DOXORUBICIN HYDROCHLORIDE
     Indication: BING-NEEL SYNDROME
     Dosage: UNK
     Route: 037
  6. METHOTREXATE SODIUM. [Suspect]
     Active Substance: METHOTREXATE SODIUM
     Indication: BING-NEEL SYNDROME
     Dosage: HIGH-DOSE
     Route: 037
  7. VINCRISTINE SULFATE. [Suspect]
     Active Substance: VINCRISTINE SULFATE
     Indication: BING-NEEL SYNDROME
     Dosage: UNK
     Route: 037
  8. PREDNISONE. [Suspect]
     Active Substance: PREDNISONE
     Indication: BING-NEEL SYNDROME
     Dosage: UNK
     Route: 037
  9. CISPLATIN. [Suspect]
     Active Substance: CISPLATIN
     Indication: BING-NEEL SYNDROME
     Dosage: UNK
     Route: 037
  10. RITUXIMAB. [Suspect]
     Active Substance: RITUXIMAB
     Indication: BING-NEEL SYNDROME
     Dosage: UNK
     Route: 037
  11. BUSULFAN. [Suspect]
     Active Substance: BUSULFAN
     Indication: PROPHYLAXIS AGAINST TRANSPLANT REJECTION
     Dosage: 0.67 MG/KG, 1X/DAY, D-9, D-8, D-7
     Route: 065
  12. DEXAMETHASONE. [Suspect]
     Active Substance: DEXAMETHASONE
     Indication: BING-NEEL SYNDROME
     Dosage: UNK
     Route: 037

REACTIONS (2)
  - Toxicity to various agents [Fatal]
  - Pneumonia [Fatal]
